FAERS Safety Report 8422189-X (Version None)
Quarter: 2012Q2

REPORT INFORMATION
  Report Type: 
  Country: None (occurrence: None)
  Receive Date: 20120608
  Receipt Date: 20120531
  Transmission Date: 20120825
  Serious: Yes (Death, Other)
  Sender: FDA-Public Use
  Company Number: FR-ROXANE LABORATORIES, INC.-2012-RO-01355RO

PATIENT
  Age: 79 Year
  Sex: Female

DRUGS (3)
  1. RIVASTIGMINE [Suspect]
     Indication: HALLUCINATION
  2. RISPERIDONE [Suspect]
     Indication: HALLUCINATION
     Dosage: 1 MG
  3. RIVASTIGMINE [Suspect]
     Indication: DEMENTIA WITH LEWY BODIES

REACTIONS (3)
  - EXTRAPYRAMIDAL DISORDER [None]
  - DIARRHOEA [None]
  - MYOCARDIAL INFARCTION [None]
